FAERS Safety Report 26167409 (Version 1)
Quarter: 2025Q4

REPORT INFORMATION
  Report Type: Spontaneous
  Country: US (occurrence: US)
  Receive Date: 20251217
  Receipt Date: 20251217
  Transmission Date: 20260117
  Serious: No
  Sender: AVEO PHARMACEUTICALS
  Company Number: US-AVEO PHARMACEUTICALS, INC.-2025-AVEO-US001040

PATIENT

DRUGS (1)
  1. FOTIVDA [Suspect]
     Active Substance: TIVOZANIB HYDROCHLORIDE
     Indication: Renal cell carcinoma
     Dosage: UNKNOWN
     Route: 061

REACTIONS (1)
  - Diarrhoea [Unknown]
